FAERS Safety Report 9861281 (Version 2)
Quarter: 2014Q1

REPORT INFORMATION
  Report Type: Spontaneous
  Country: None (occurrence: US)
  Receive Date: 20140202
  Receipt Date: 20140202
  Transmission Date: 20141002
  Serious: No
  Sender: FDA-Public Use
  Company Number: US-ALLERGAN-1304307US

PATIENT
  Age: 75 Year
  Sex: Female

DRUGS (8)
  1. BOTOX COSMETIC [Suspect]
     Indication: SKIN WRINKLING
     Dosage: 10 UNITS, SINGLE
     Route: 030
     Dates: start: 201301, end: 201301
  2. BOTOX COSMETIC [Suspect]
     Dosage: 10 UNITS, SINGLE
     Route: 030
     Dates: start: 201301, end: 201301
  3. BOTOX COSMETIC [Suspect]
     Dosage: 10 UNITS, SINGLE
     Route: 030
     Dates: start: 20120823, end: 20120823
  4. BOTOX COSMETIC [Suspect]
     Dosage: 10 UNITS, SINGLE
     Route: 030
     Dates: start: 20120823, end: 20120823
  5. ANTIDEPRESSANTS [Concomitant]
     Indication: DEPRESSION
     Dosage: UNK
  6. STATIN NOS [Concomitant]
     Indication: BLOOD CHOLESTEROL INCREASED
     Dosage: UNK
  7. VITAMIN D NOS [Concomitant]
     Indication: VITAMIN D DEFICIENCY
     Dosage: UNK
  8. NEXIUM                             /01479302/ [Concomitant]
     Indication: GASTROOESOPHAGEAL REFLUX DISEASE
     Dosage: UNK

REACTIONS (6)
  - Injection site mass [Not Recovered/Not Resolved]
  - Injection site mass [Not Recovered/Not Resolved]
  - Off label use [Unknown]
  - Dysphagia [Unknown]
  - Vertigo positional [Unknown]
  - Injection site swelling [Not Recovered/Not Resolved]
